FAERS Safety Report 12826936 (Version 1)
Quarter: 2016Q4

REPORT INFORMATION
  Report Type: Spontaneous
  Country: TH (occurrence: TH)
  Receive Date: 20161006
  Receipt Date: 20161006
  Transmission Date: 20170207
  Serious: Yes (Other)
  Sender: FDA-Public Use
  Company Number: PHHY2016TH134747

PATIENT
  Age: 35 Year
  Sex: Male

DRUGS (1)
  1. BASILIXIMAB [Suspect]
     Active Substance: BASILIXIMAB
     Indication: RENAL TRANSPLANT
     Route: 065

REACTIONS (3)
  - Kidney transplant rejection [Recovering/Resolving]
  - Renal tubular atrophy [Unknown]
  - Kidney fibrosis [Unknown]
